FAERS Safety Report 9254988 (Version 1)
Quarter: 2013Q1

REPORT INFORMATION
  Report Type: Spontaneous
  Country: US (occurrence: None)
  Receive Date: 20121203
  Receipt Date: 20121203
  Transmission Date: 20140127
  Serious: Yes (Life-Threatening, Hospitalization)
  Sender: FDA-Public Use
  Company Number: 1210USA011423

PATIENT
  Age: 48 Year
  Sex: Female

DRUGS (1)
  1. JANUMET [Suspect]
     Indication: TYPE 2 DIABETES MELLITUS
     Dosage: 2 TAB, 50MG/1000MG, QD, ORAL?1 TAB DAILY ORAL.
     Dates: end: 201210

REACTIONS (1)
  - Lactic acidosis [None]
